FAERS Safety Report 4359742-9 (Version None)
Quarter: 2004Q2

REPORT INFORMATION
  Report Type: 
  Country: None (occurrence: None)
  Receive Date: 20040518
  Receipt Date: 20031031
  Transmission Date: 20050107
  Serious: Yes (Hospitalization)
  Sender: FDA-Public Use
  Company Number: US-MERCK-0311USA00034

PATIENT
  Age: 63 Year
  Sex: Female
  Weight: 134 kg

DRUGS (11)
  1. VIOXX [Suspect]
     Indication: PAIN MANAGEMENT
     Route: 048
     Dates: start: 20031021, end: 20031026
  2. VIOXX [Suspect]
     Indication: POST PROCEDURAL PAIN
     Route: 048
     Dates: start: 20031021, end: 20031026
  3. BEXTRA [Concomitant]
     Indication: ARTHRALGIA
     Route: 048
     Dates: start: 20031001, end: 20031017
  4. BEXTRA [Concomitant]
     Indication: OSTEOARTHRITIS
     Route: 048
     Dates: start: 20031001, end: 20031017
  5. LORTAB [Suspect]
     Indication: PAIN MANAGEMENT
     Route: 048
     Dates: start: 20031021, end: 20031027
  6. LORTAB [Suspect]
     Indication: POST PROCEDURAL PAIN
     Route: 048
     Dates: start: 20031021, end: 20031027
  7. NORVASC [Concomitant]
     Indication: HYPERTENSION
     Route: 048
     Dates: start: 20020101
  8. PREMARIN [Concomitant]
     Route: 048
     Dates: start: 19880101, end: 20031027
  9. HYZAAR [Concomitant]
     Indication: HYPERTENSION
     Route: 048
     Dates: start: 20020101
  10. PREVACID [Concomitant]
     Route: 065
  11. PRILOSEC [Concomitant]
     Indication: GASTROOESOPHAGEAL REFLUX DISEASE
     Route: 048
     Dates: start: 20000101

REACTIONS (1)
  - DEEP VEIN THROMBOSIS [None]
